FAERS Safety Report 5122885-6 (Version None)
Quarter: 2006Q4

REPORT INFORMATION
  Report Type: 
  Country: None (occurrence: None)
  Receive Date: 20061009
  Receipt Date: 20061003
  Transmission Date: 20070319
  Serious: Yes (Hospitalization)
  Sender: FDA-Public Use
  Company Number: 2006AP04573

PATIENT
  Age: 10809 Day
  Sex: Male

DRUGS (6)
  1. SEROQUEL [Suspect]
     Route: 048
     Dates: start: 20060703, end: 20060707
  2. METOCLOPRAMIDE HYDROCHLORIDE [Concomitant]
  3. THIAMINE [Concomitant]
  4. FOLIC ACID [Concomitant]
  5. OXAZEPAM [Concomitant]
  6. TRAMADOL HCL [Concomitant]

REACTIONS (12)
  - ANOREXIA [None]
  - ASTERIXIS [None]
  - CONFUSIONAL STATE [None]
  - DIARRHOEA [None]
  - HEPATOTOXICITY [None]
  - INTERNATIONAL NORMALISED RATIO INCREASED [None]
  - JAUNDICE [None]
  - LETHARGY [None]
  - MALAISE [None]
  - NYSTAGMUS [None]
  - SERUM FERRITIN INCREASED [None]
  - SOMNOLENCE [None]
